FAERS Safety Report 13109944 (Version 1)
Quarter: 2017Q1

REPORT INFORMATION
  Report Type: Spontaneous
  Country: US (occurrence: US)
  Receive Date: 20170112
  Receipt Date: 20170112
  Transmission Date: 20170428
  Serious: Yes (Hospitalization)
  Sender: FDA-Public Use
  Company Number: US-ROCHE-1099272

PATIENT
  Age: 51 Year
  Sex: Male

DRUGS (5)
  1. ACTIVASE [Suspect]
     Active Substance: ALTEPLASE
     Indication: ACUTE MYOCARDIAL INFARCTION
     Dosage: 30 MG/60ML DW
     Route: 065
  2. ACTIVASE [Suspect]
     Active Substance: ALTEPLASE
     Dosage: 10MG\20ML DW
     Route: 065
  3. ACTIVASE [Suspect]
     Active Substance: ALTEPLASE
     Dosage: 60MG/120DW
     Route: 065
  4. PHENERGAN [Concomitant]
     Active Substance: PROMETHAZINE HYDROCHLORIDE
     Route: 042
  5. LIDOCAIN [Concomitant]
     Active Substance: LIDOCAINE
     Route: 040

REACTIONS (1)
  - Cardiac failure congestive [Unknown]
